FAERS Safety Report 5317844-4 (Version None)
Quarter: 2007Q2

REPORT INFORMATION
  Report Type: 
  Country: None (occurrence: None)
  Receive Date: 20070430
  Receipt Date: 20070424
  Transmission Date: 20071010
  Serious: Yes (Death)
  Sender: FDA-Public Use
  Company Number: 2007S1000094

PATIENT
  Age: 11 Day
  Sex: Female

DRUGS (13)
  1. NITRIC OXIDE [Suspect]
     Indication: LUNG DISORDER
     Dosage: 5 PPM;INH_GAS;INH;CONT
     Route: 055
     Dates: start: 20070402, end: 20070423
  2. NITRIC OXIDE [Suspect]
     Indication: PROPHYLAXIS
     Dosage: 5 PPM;INH_GAS;INH;CONT
     Route: 055
     Dates: start: 20070402, end: 20070423
  3. NITRIC OXIDE [Suspect]
  4. NITRIC OXIDE [Suspect]
  5. DOPAMINE HCL [Concomitant]
  6. MIDAZOLAM HCL [Concomitant]
  7. MORPHINE [Concomitant]
  8. HYDROCHLOROTHIAZIDE [Concomitant]
  9. SPIRONOLACTONE [Concomitant]
  10. BUDESONIDE [Concomitant]
  11. SALBUTAMOL (SALBUTAMOL) [Concomitant]
  12. ERYTHROCIN STEARATE [Concomitant]
  13. SODIUM CHLORIDE 0.9% [Concomitant]

REACTIONS (2)
  - NEONATAL RESPIRATORY FAILURE [None]
  - PATENT DUCTUS ARTERIOSUS [None]
